FAERS Safety Report 5832973-4 (Version None)
Quarter: 2008Q3

REPORT INFORMATION
  Report Type: 
  Country: None (occurrence: None)
  Receive Date: 20080804
  Receipt Date: 20080725
  Transmission Date: 20090109
  Serious: Yes (Hospitalization)
  Sender: FDA-Public Use
  Company Number: US-ABBOTT-08P-163-0468005-00

PATIENT
  Sex: Female
  Weight: 74.91 kg

DRUGS (1)
  1. HUMIRA [Suspect]
     Indication: RHEUMATOID ARTHRITIS
     Route: 050
     Dates: start: 20080101, end: 20080601

REACTIONS (5)
  - ALOPECIA [None]
  - ILL-DEFINED DISORDER [None]
  - INFECTION [None]
  - RHEUMATOID ARTHRITIS [None]
  - SURGERY [None]
